FAERS Safety Report 23786271 (Version 1)
Quarter: 2024Q2

REPORT INFORMATION
  Report Type: Spontaneous
  Country: US (occurrence: US)
  Receive Date: 20240426
  Receipt Date: 20240426
  Transmission Date: 20240716
  Serious: No
  Sender: FDA-Public Use
  Company Number: US-AMGEN-USASP2024082772

PATIENT
  Age: 53 Year
  Sex: Female

DRUGS (1)
  1. KANJINTI [Suspect]
     Active Substance: TRASTUZUMAB-ANNS
     Indication: Breast cancer female
     Dosage: 420 MILLIGRAM
     Route: 065

REACTIONS (1)
  - Circumstance or information capable of leading to medication error [Unknown]
